FAERS Safety Report 6747706-7 (Version None)
Quarter: 2010Q2

REPORT INFORMATION
  Report Type: 
  Country: None (occurrence: None)
  Receive Date: 20100528
  Receipt Date: 20100524
  Transmission Date: 20101027
  Serious: Yes (Hospitalization)
  Sender: FDA-Public Use
  Company Number: US-ELI_LILLY_AND_COMPANY-US200711004425

PATIENT
  Sex: Female
  Weight: 104.31 kg

DRUGS (15)
  1. BYETTA [Suspect]
     Indication: TYPE 2 DIABETES MELLITUS
     Dosage: 5 UG, 2/D
     Route: 058
     Dates: start: 20071015, end: 20071112
  2. BYETTA [Suspect]
     Dosage: 10 UG, 2/D
     Route: 058
     Dates: start: 20071113, end: 20071114
  3. BYETTA [Suspect]
     Dosage: 5 UG, 2/D
     Route: 058
     Dates: start: 20071115
  4. GLYBURIDE [Concomitant]
     Indication: TYPE 2 DIABETES MELLITUS
     Dosage: 5 MG, 2/D
     Dates: start: 19980101
  5. FUROSEMIDE [Concomitant]
     Indication: SWELLING
     Dosage: 60 MG, EACH MORNING
  6. FUROSEMIDE [Concomitant]
     Dosage: 20 MG, EACH EVENING
  7. LIPITOR [Concomitant]
     Indication: BLOOD CHOLESTEROL INCREASED
     Dosage: 20 MG, DAILY (1/D)
     Dates: start: 19940101
  8. NITROGLYCERIN [Concomitant]
     Indication: CHEST PAIN
     Dosage: UNK, AS NEEDED
     Route: 060
  9. ASPIRIN [Concomitant]
     Dosage: 325 MG, DAILY (1/D)
  10. LISINOPRIL [Concomitant]
     Indication: BLOOD PRESSURE INCREASED
     Dosage: 40 MG, DAILY (1/D)
     Dates: start: 20050101
  11. LORAZEPAM [Concomitant]
     Indication: ANXIETY
     Dosage: 0.5 MG, DAILY (1/D)
     Dates: start: 19940101
  12. DILTIAZEM [Concomitant]
     Indication: BLOOD PRESSURE INCREASED
     Dosage: 180 MG, DAILY (1/D)
  13. ATENOLOL [Concomitant]
     Indication: BLOOD PRESSURE INCREASED
     Dosage: 100 MG, 2/D
  14. LASIX [Concomitant]
     Indication: CARDIAC FAILURE
     Dosage: 80 MG, EACH MORNING
  15. ATIVAN [Concomitant]
     Indication: ANXIETY
     Dosage: 0.5 MG, 2/D

REACTIONS (10)
  - ABDOMINAL PAIN UPPER [None]
  - ARTHRALGIA [None]
  - BLOOD GLUCOSE INCREASED [None]
  - CORONARY ARTERIAL STENT INSERTION [None]
  - FEELING ABNORMAL [None]
  - HEADACHE [None]
  - JOINT SWELLING [None]
  - MICTURITION DISORDER [None]
  - NAUSEA [None]
  - OEDEMA PERIPHERAL [None]
